FAERS Safety Report 21487580 (Version 1)
Quarter: 2022Q4

REPORT INFORMATION
  Report Type: Report from Study
  Country: MX (occurrence: MX)
  Receive Date: 20221020
  Receipt Date: 20221020
  Transmission Date: 20230113
  Serious: Yes (Hospitalization, Other)
  Sender: FDA-Public Use
  Company Number: MX-UCBSA-2022060013

PATIENT
  Sex: Female
  Weight: 36 kg

DRUGS (4)
  1. ROTIGOTINE [Suspect]
     Active Substance: ROTIGOTINE
     Indication: Parkinsonism
     Dosage: 2 MILLIGRAM, ONCE DAILY (QD)
     Route: 062
     Dates: start: 2022, end: 2022
  2. ROTIGOTINE [Suspect]
     Active Substance: ROTIGOTINE
     Dosage: 4 MILLIGRAM, ONCE DAILY (QD)
     Route: 062
     Dates: start: 2022, end: 20220923
  3. LEVODOPA [Concomitant]
     Active Substance: LEVODOPA
     Indication: Parkinson^s disease
     Dosage: UNK
  4. LEVOTHYROXINE [Concomitant]
     Active Substance: LEVOTHYROXINE
     Indication: Hypothyroidism
     Dosage: UNK

REACTIONS (8)
  - Aspiration [Recovered/Resolved]
  - Pneumonia [Recovering/Resolving]
  - Cardiac arrest [Unknown]
  - Tremor [Not Recovered/Not Resolved]
  - Insomnia [Unknown]
  - Dehydration [Unknown]
  - Hypotension [Recovered/Resolved]
  - Asthenia [Not Recovered/Not Resolved]

NARRATIVE: CASE EVENT DATE: 20220101
